FAERS Safety Report 18313655 (Version 1)
Quarter: 2020Q3

REPORT INFORMATION
  Report Type: Spontaneous
  Country: US (occurrence: US)
  Receive Date: 20200925
  Receipt Date: 20200925
  Transmission Date: 20201103
  Serious: Yes (Other)
  Sender: FDA-Public Use
  Company Number: US-PFIZER INC-2020369388

PATIENT
  Age: 68 Year
  Sex: Male
  Weight: 111.13 kg

DRUGS (1)
  1. XELJANZ XR [Suspect]
     Active Substance: TOFACITINIB CITRATE
     Indication: ARTHRITIS
     Dosage: UNK (DOSAGE TEXT: 11MG)
     Dates: end: 2020

REACTIONS (1)
  - Glucose tolerance impaired [Unknown]
